FAERS Safety Report 11370721 (Version 1)
Quarter: 2015Q3

REPORT INFORMATION
  Report Type: Spontaneous
  Country: IT (occurrence: IT)
  Receive Date: 20150812
  Receipt Date: 20150812
  Transmission Date: 20151125
  Serious: Yes (Hospitalization)
  Sender: FDA-Public Use
  Company Number: IT-PFIZER INC-2015265115

PATIENT
  Age: 45 Year
  Sex: Female

DRUGS (4)
  1. OPTALIDON [Concomitant]
     Active Substance: ACETAMINOPHEN\CAFFEINE OR CAFFEINE\PROPYPHENAZONE OR IBUPROFEN
  2. GRACIAL [Concomitant]
     Active Substance: DESOGESTREL\ETHINYL ESTRADIOL
  3. RELPAX [Suspect]
     Active Substance: ELETRIPTAN HYDROBROMIDE
     Indication: HEADACHE
     Dosage: 40 MG, 2X/DAY
     Route: 048
     Dates: start: 20130101, end: 20150805
  4. TACHIPIRINA [Concomitant]
     Active Substance: ACETAMINOPHEN

REACTIONS (5)
  - Photopsia [Recovering/Resolving]
  - Scintillating scotoma [Recovering/Resolving]
  - Paraesthesia [Recovering/Resolving]
  - Somnolence [Recovering/Resolving]
  - Aphasia [Recovering/Resolving]

NARRATIVE: CASE EVENT DATE: 20150201
